FAERS Safety Report 26018721 (Version 2)
Quarter: 2025Q4

REPORT INFORMATION
  Report Type: Report from Study
  Country: AR (occurrence: AR)
  Receive Date: 20251110
  Receipt Date: 20251124
  Transmission Date: 20260118
  Serious: No
  Sender: BIOGEN
  Company Number: AR-BIOGEN-2089775

PATIENT
  Age: 27 Year
  Sex: Female

DRUGS (1)
  1. TYSABRI [Suspect]
     Active Substance: NATALIZUMAB
     Indication: Multiple sclerosis
     Dates: start: 20230713, end: 20231201

REACTIONS (1)
  - Rash [Unknown]
